FAERS Safety Report 8305784-8 (Version None)
Quarter: 2012Q2

REPORT INFORMATION
  Report Type: 
  Country: None (occurrence: None)
  Receive Date: 20120423
  Receipt Date: 20120417
  Transmission Date: 20120825
  Serious: No
  Sender: FDA-Public Use
  Company Number: US-PFIZER INC-2012095592

PATIENT
  Sex: Female
  Weight: 90.7 kg

DRUGS (3)
  1. WELLBUTRIN [Concomitant]
     Dosage: 200 MG, 1X/DAY
  2. LYRICA [Suspect]
     Indication: NEURALGIA
     Dosage: 200MG AM, 100 MG PM
     Route: 048
     Dates: start: 20120123
  3. TOPROL-XL [Concomitant]
     Dosage: 100 MG, 1X/DAY

REACTIONS (1)
  - ALOPECIA [None]
